FAERS Safety Report 17460387 (Version 4)
Quarter: 2020Q3

REPORT INFORMATION
  Report Type: Spontaneous
  Country: US (occurrence: US)
  Receive Date: 20200226
  Receipt Date: 20200710
  Transmission Date: 20201102
  Serious: Yes (Hospitalization, Other)
  Sender: FDA-Public Use
  Company Number: US-PFIZER INC-2020082762

PATIENT
  Age: 77 Year
  Sex: Female
  Weight: 43.99 kg

DRUGS (7)
  1. LEVOTHYROXINE SODIUM. [Suspect]
     Active Substance: LEVOTHYROXINE SODIUM
     Dosage: 1 DF, DAILY(ONE MEDICATION EACH DAY, WITHOUT REACTION)
     Dates: start: 20180827
  2. TYLENOL [Concomitant]
     Active Substance: ACETAMINOPHEN
     Dosage: UNK, AS NEEDED(ONLY IF NEEDED, NOT OFTEN)
  3. CLOPIDOGREL [Concomitant]
     Active Substance: CLOPIDOGREL BISULFATE
     Dosage: 75 MG
  4. OLMESARTAN MEDOXOMIL. [Concomitant]
     Active Substance: OLMESARTAN MEDOXOMIL
     Dosage: 5 MG
  5. METOPROLOL [METOPROLOL SUCCINATE] [Concomitant]
     Dosage: 25 MG
  6. LEVOTHYROXINE SODIUM. [Suspect]
     Active Substance: LEVOTHYROXINE SODIUM
     Indication: HYPOTHYROIDISM
     Dosage: 50 UG, ALTERNATE DAY (1 AND 1/2 EVERY OTHER DAY)
     Route: 048
     Dates: start: 20121030, end: 20180906
  7. LEVOTHYROXINE SODIUM. [Suspect]
     Active Substance: LEVOTHYROXINE SODIUM
     Indication: THYROID DISORDER
     Dosage: 25 UG, ALTERNATE DAY (1 AND 1/2 EVERY OTHER DAY)
     Route: 048
     Dates: start: 20121030, end: 20180906

REACTIONS (19)
  - Weight decreased [Not Recovered/Not Resolved]
  - Haemorrhage [Unknown]
  - Amnesia [Recovered/Resolved]
  - Diarrhoea [Recovered/Resolved]
  - Madarosis [Recovered/Resolved]
  - Eating disorder [Not Recovered/Not Resolved]
  - Cyst [Recovered/Resolved]
  - Muscle spasms [Not Recovered/Not Resolved]
  - Colon cancer [Recovered/Resolved]
  - Arthralgia [Not Recovered/Not Resolved]
  - Gastritis [Not Recovered/Not Resolved]
  - Osteoarthritis [Recovered/Resolved]
  - Illness [Recovered/Resolved]
  - Eye haemorrhage [Not Recovered/Not Resolved]
  - Abdominal discomfort [Not Recovered/Not Resolved]
  - Alopecia [Recovered/Resolved]
  - Renal failure [Not Recovered/Not Resolved]
  - Eye disorder [Not Recovered/Not Resolved]
  - Bone disorder [Unknown]

NARRATIVE: CASE EVENT DATE: 20121030
